FAERS Safety Report 8538427-9 (Version None)
Quarter: 2012Q3

REPORT INFORMATION
  Report Type: 
  Country: None (occurrence: None)
  Receive Date: 20120712
  Receipt Date: 20120629
  Transmission Date: 20120928
  Serious: Yes (Other)
  Sender: FDA-Public Use
  Company Number: FK201201733

PATIENT
  Age: 65 Year
  Sex: Female

DRUGS (2)
  1. GLUCOSE (GLUCOSE) (GLUCOSE) [Suspect]
     Indication: PRODUCT USED FOR UNKNOWN INDICATION
  2. OXALIPLATIN [Suspect]
     Indication: PRODUCT USED FOR UNKNOWN INDICATION
     Dates: start: 20120612

REACTIONS (1)
  - ANAPHYLACTIC REACTION [None]
